FAERS Safety Report 5964169-X (Version None)
Quarter: 2008Q4

REPORT INFORMATION
  Report Type: 
  Country: None (occurrence: None)
  Receive Date: 20081121
  Receipt Date: 20081121
  Transmission Date: 20090506
  Serious: Yes (Other)
  Sender: FDA-Public Use
  Company Number: None

PATIENT
  Sex: Female
  Weight: 81.6475 kg

DRUGS (3)
  1. LEXAPRO [Suspect]
     Indication: DEPRESSION
     Dosage: 10MG DAILY PO
     Route: 048
     Dates: start: 20081105, end: 20081115
  2. TRAZODONE HCL [Concomitant]
  3. FEMRING [Concomitant]

REACTIONS (15)
  - ABNORMAL BEHAVIOUR [None]
  - ANGER [None]
  - AUTOPHONY [None]
  - DISTURBANCE IN ATTENTION [None]
  - FEELING ABNORMAL [None]
  - FEELING COLD [None]
  - FEELING HOT [None]
  - FLUSHING [None]
  - HYPERHIDROSIS [None]
  - ILL-DEFINED DISORDER [None]
  - MYDRIASIS [None]
  - NIGHT SWEATS [None]
  - PALPITATIONS [None]
  - PERSONALITY CHANGE [None]
  - PHOTOPHOBIA [None]
